FAERS Safety Report 9817651 (Version 3)
Quarter: 2014Q2

REPORT INFORMATION
  Report Type: Spontaneous
  Country: DE (occurrence: JP)
  Receive Date: 20140115
  Receipt Date: 20140411
  Transmission Date: 20141212
  Serious: Yes (Life-Threatening, Hospitalization, Disabling, Other)
  Sender: FDA-Public Use
  Company Number: JP-BRACCO-007732

PATIENT
  Age: 77 Year
  Sex: Female
  Weight: 44 kg

DRUGS (10)
  1. IOPAMIRON [Suspect]
     Indication: ANGIOGRAM
     Route: 022
     Dates: start: 20131105, end: 20131105
  2. NEXIUM [Concomitant]
     Indication: PROPHYLAXIS
     Dates: start: 20130913
  3. MYONAL [Concomitant]
     Indication: BACK PAIN
     Dates: start: 20130913
  4. BAYASPIRIN [Concomitant]
     Indication: ANGINA PECTORIS
     Dates: start: 20130913
  5. LUPRAC [Concomitant]
     Indication: CARDIAC FAILURE
     Dates: start: 20130913
  6. LANIRAPID [Concomitant]
     Indication: CARDIAC FAILURE
     Dates: start: 20130913
  7. MICARDIS [Concomitant]
     Indication: HYPERTENSION
     Dates: start: 20130913
  8. WARFARIN [Concomitant]
     Indication: CORONARY ARTERY BYPASS
     Dates: start: 20130913
  9. HERBESSER R [Concomitant]
     Indication: ANGINA PECTORIS
     Dates: start: 20130913
  10. IOPAMIRON [Suspect]
     Indication: ANGIOGRAM
     Route: 065
     Dates: start: 20131105, end: 20131105

REACTIONS (4)
  - Optic ischaemic neuropathy [Recovered/Resolved with Sequelae]
  - Cardiac arrest [Recovered/Resolved]
  - Laryngeal oedema [Recovered/Resolved with Sequelae]
  - Anaphylactic shock [Recovered/Resolved with Sequelae]
